FAERS Safety Report 24992394 (Version 1)
Quarter: 2025Q1

REPORT INFORMATION
  Report Type: Spontaneous
  Country: FR (occurrence: FR)
  Receive Date: 20250220
  Receipt Date: 20250220
  Transmission Date: 20250409
  Serious: Yes (Hospitalization)
  Sender: ABBVIE
  Company Number: None

PATIENT
  Sex: Female
  Weight: 2.57 kg

DRUGS (4)
  1. CREON [Suspect]
     Active Substance: PANCRELIPASE AMYLASE\PANCRELIPASE LIPASE\PANCRELIPASE PROTEASE
     Indication: Maternal exposure timing unspecified
     Dates: start: 20240412, end: 20241202
  2. CHOLECALCIFEROL [Suspect]
     Active Substance: CHOLECALCIFEROL
     Indication: Maternal exposure timing unspecified
     Dates: start: 20240412, end: 20241202
  3. KALYDECO [Suspect]
     Active Substance: IVACAFTOR
     Indication: Maternal exposure timing unspecified
     Dates: start: 20240412, end: 20241202
  4. ELEXACAFTOR\IVACAFTOR\TEZACAFTOR [Suspect]
     Active Substance: ELEXACAFTOR\IVACAFTOR\TEZACAFTOR
     Indication: Maternal exposure timing unspecified
     Dates: start: 20240412, end: 20241202

REACTIONS (2)
  - Premature baby [Unknown]
  - Foetal exposure during pregnancy [Unknown]
